FAERS Safety Report 5084800-3 (Version None)
Quarter: 2006Q3

REPORT INFORMATION
  Report Type: 
  Country: None (occurrence: None)
  Receive Date: 20060814
  Receipt Date: 20060704
  Transmission Date: 20061208
  Serious: Yes (Hospitalization)
  Sender: FDA-Public Use
  Company Number: HR200608000665

PATIENT
  Sex: 0

DRUGS (4)
  1. ZYPREXA [Suspect]
     Dosage: DAILY (1/D), TRANSPLACENTAL
     Route: 064
  2. PAROXETIN/SWE/(PAROXETINE) [Concomitant]
  3. ZOLPIDEM TARTRATE [Concomitant]
  4. SERTRALINE [Concomitant]

REACTIONS (4)
  - DRUG EXPOSURE DURING PREGNANCY [None]
  - ESCHERICHIA INFECTION [None]
  - HYPERTONIA NEONATAL [None]
  - NEONATAL RESPIRATORY DISTRESS SYNDROME [None]
